FAERS Safety Report 7466805-8 (Version None)
Quarter: 2011Q2

REPORT INFORMATION
  Report Type: 
  Country: None (occurrence: None)
  Receive Date: 20110509
  Receipt Date: 20110426
  Transmission Date: 20111010
  Serious: Yes (Disabling)
  Sender: FDA-Public Use
  Company Number: US-MERCK-1012USA04204

PATIENT
  Age: 57 Year
  Sex: Female

DRUGS (8)
  1. ZOLINZA [Suspect]
     Route: 048
     Dates: start: 20100603, end: 20110101
  2. PRAVASTATIN SODIUM [Concomitant]
     Route: 065
  3. CALCIUM CARBONATE [Concomitant]
     Route: 065
  4. ZOLINZA [Suspect]
     Indication: MYCOSIS FUNGOIDES
     Route: 048
     Dates: start: 20100403, end: 20100601
  5. MAXZIDE [Concomitant]
     Route: 065
  6. ATARAX (ALPRAZOLAM) [Concomitant]
     Route: 065
  7. ATENOLOL [Concomitant]
     Route: 065
  8. ASPIRIN [Concomitant]
     Route: 065

REACTIONS (7)
  - BLINDNESS UNILATERAL [None]
  - VISUAL IMPAIRMENT [None]
  - UNDERDOSE [None]
  - DIARRHOEA [None]
  - VITREOUS HAEMORRHAGE [None]
  - MASS [None]
  - MYCOSIS FUNGOIDES [None]
